FAERS Safety Report 6685989-2 (Version None)
Quarter: 2010Q2

REPORT INFORMATION
  Report Type: 
  Country: None (occurrence: None)
  Receive Date: 20100419
  Receipt Date: 20100414
  Transmission Date: 20101027
  Serious: Yes (Death)
  Sender: FDA-Public Use
  Company Number: PHHY2010JP23655

PATIENT
  Sex: Female

DRUGS (4)
  1. DIOVAN [Suspect]
     Indication: HYPERTENSION
     Dosage: 40 MG, QD
     Route: 048
     Dates: start: 20080206
  2. ATELEC [Concomitant]
     Indication: HYPERTENSION
     Dosage: 10 MG, UNK
     Route: 048
     Dates: start: 20071212
  3. KALIMATE [Concomitant]
     Dosage: 10 G, UNK
     Route: 048
     Dates: start: 20071212
  4. PARIET [Concomitant]
     Dosage: 10 MG, UNK
     Route: 048
     Dates: start: 20071212

REACTIONS (1)
  - RENAL FAILURE [None]
